FAERS Safety Report 5032820-7 (Version None)
Quarter: 2006Q2

REPORT INFORMATION
  Report Type: 
  Country: None (occurrence: None)
  Receive Date: 20060622
  Receipt Date: 20060612
  Transmission Date: 20061013
  Serious: Yes (Other)
  Sender: FDA-Public Use
  Company Number: 2006UW12593

PATIENT
  Age: 46 Year
  Sex: Male
  Weight: 88.9 kg

DRUGS (6)
  1. SEROQUEL [Suspect]
     Indication: SCHIZOPHRENIA, PARANOID TYPE
     Route: 048
     Dates: start: 20060201
  2. SEROQUEL [Suspect]
     Route: 048
  3. DIABETES PILL [Concomitant]
  4. COGENTIN [Concomitant]
  5. PROLIXIN [Concomitant]
  6. PALEXID [Concomitant]

REACTIONS (3)
  - DYSSTASIA [None]
  - FEELING ABNORMAL [None]
  - MUSCLE SPASMS [None]
